FAERS Safety Report 9780595 (Version 1)
Quarter: 2013Q4

REPORT INFORMATION
  Report Type: Spontaneous
  Country: US (occurrence: US)
  Receive Date: 20131224
  Receipt Date: 20131224
  Transmission Date: 20140711
  Serious: Yes (Other)
  Sender: FDA-Public Use
  Company Number: US-GE HEALTHCARE MEDICAL DIAGNOSTICS-MYVW-PR-1312S-0100

PATIENT
  Sex: Female

DRUGS (2)
  1. MYOVIEW [Suspect]
     Indication: PRODUCT USED FOR UNKNOWN INDICATION
     Route: 042
     Dates: start: 20131203, end: 20131203
  2. MYOVIEW [Suspect]
     Indication: DIAGNOSTIC PROCEDURE

REACTIONS (1)
  - Tremor [Recovered/Resolved]
